FAERS Safety Report 18687256 (Version 9)
Quarter: 2021Q2

REPORT INFORMATION
  Report Type: Report from Study
  Country: US (occurrence: US)
  Receive Date: 20201231
  Receipt Date: 20210415
  Transmission Date: 20210717
  Serious: Yes (Hospitalization)
  Sender: FDA-Public Use
  Company Number: US-GILEAD-2020-0500181

PATIENT
  Age: 40 Year
  Sex: Female

DRUGS (6)
  1. AMBRISENTAN [Suspect]
     Active Substance: AMBRISENTAN
     Indication: PULMONARY ARTERIAL HYPERTENSION
  2. REVATIO [Concomitant]
     Active Substance: SILDENAFIL CITRATE
  3. AMBRISENTAN [Suspect]
     Active Substance: AMBRISENTAN
     Indication: PULMONARY HYPERTENSION
     Dosage: 10 MG, QD
     Route: 048
     Dates: start: 20191204
  4. XARELTO [Concomitant]
     Active Substance: RIVAROXABAN
  5. REMODULIN [Suspect]
     Active Substance: TREPROSTINIL
     Indication: PRODUCT USED FOR UNKNOWN INDICATION
     Route: 065
  6. ELIQUIS [Concomitant]
     Active Substance: APIXABAN

REACTIONS (22)
  - Infusion site swelling [Unknown]
  - Skin reaction [Unknown]
  - Ocular discomfort [Not Recovered/Not Resolved]
  - Catheter site haemorrhage [Not Recovered/Not Resolved]
  - Hypersensitivity [Unknown]
  - Infusion site erythema [Unknown]
  - Blood pressure abnormal [Recovered/Resolved]
  - Catheter placement [Unknown]
  - Feeling hot [Recovered/Resolved]
  - Dyspnoea [Unknown]
  - Injection site reaction [Not Recovered/Not Resolved]
  - Erythema [Unknown]
  - Dizziness [Not Recovered/Not Resolved]
  - Swelling [Unknown]
  - Infection [Unknown]
  - Swelling face [Unknown]
  - Sensitive skin [Unknown]
  - Rhinorrhoea [Not Recovered/Not Resolved]
  - Nausea [Recovered/Resolved]
  - Intraocular pressure test abnormal [Not Recovered/Not Resolved]
  - Flushing [Recovered/Resolved]
  - Product dose omission issue [Recovered/Resolved]
